FAERS Safety Report 21174239 (Version 1)
Quarter: 2022Q3

REPORT INFORMATION
  Report Type: Spontaneous
  Country: HR (occurrence: HR)
  Receive Date: 20220804
  Receipt Date: 20220804
  Transmission Date: 20221026
  Serious: Yes (Other)
  Sender: FDA-Public Use
  Company Number: None

PATIENT
  Sex: Female
  Weight: 65 kg

DRUGS (1)
  1. ESCITALOPRAM OXALATE [Suspect]
     Active Substance: ESCITALOPRAM OXALATE
     Indication: Product used for unknown indication
     Dosage: 20 DF, QD
     Route: 048
     Dates: start: 20220612, end: 20220612

REACTIONS (4)
  - Overdose [Unknown]
  - Seizure [Unknown]
  - Tachycardia [Unknown]
  - Vomiting [Unknown]

NARRATIVE: CASE EVENT DATE: 20220612
